FAERS Safety Report 6190240-6 (Version None)
Quarter: 2009Q2

REPORT INFORMATION
  Report Type: 
  Country: None (occurrence: None)
  Receive Date: 20090513
  Receipt Date: 20090513
  Transmission Date: 20091009
  Serious: Yes (Life-Threatening)
  Sender: FDA-Public Use
  Company Number: None

PATIENT
  Age: 71 Year
  Sex: Female
  Weight: 74.3899 kg

DRUGS (2)
  1. TAXOTERE [Suspect]
     Indication: BREAST CANCER
     Dosage: 140 MG EVERY 3 WEEKS IV DRIP
     Route: 041
     Dates: start: 20090428, end: 20090428
  2. CYTOXAN [Suspect]
     Dosage: 1130 MG EVERY 3 WEEKS IV DRIP
     Route: 041

REACTIONS (2)
  - NAUSEA [None]
  - VOMITING [None]
